FAERS Safety Report 21896468 (Version 1)
Quarter: 2023Q1

REPORT INFORMATION
  Report Type: Spontaneous
  Country: US (occurrence: US)
  Receive Date: 20230123
  Receipt Date: 20230123
  Transmission Date: 20230418
  Serious: No
  Sender: FDA-Public Use
  Company Number: US-ALXN-A202300691

PATIENT
  Age: 17 Year
  Sex: Female
  Weight: 57.7 kg

DRUGS (1)
  1. ULTOMIRIS [Suspect]
     Active Substance: RAVULIZUMAB-CWVZ
     Indication: Atypical haemolytic uraemic syndrome
     Dosage: 3000 MG, Q8 WEEKS
     Route: 065

REACTIONS (3)
  - Dehydration [Unknown]
  - Abdominal pain [Unknown]
  - Nausea [Unknown]
